FAERS Safety Report 10063790 (Version 2)
Quarter: 2014Q2

REPORT INFORMATION
  Report Type: Spontaneous
  Country: US (occurrence: US)
  Receive Date: 20140408
  Receipt Date: 20140619
  Transmission Date: 20141212
  Serious: Yes (Hospitalization, Other)
  Sender: FDA-Public Use
  Company Number: US-JNJFOC-20140317466

PATIENT
  Age: 15 Year
  Sex: Male
  Weight: 88 kg

DRUGS (10)
  1. BENADRYL [Suspect]
     Indication: ANTIEMETIC SUPPORTIVE CARE
     Route: 065
  2. CRIZOTINIB [Suspect]
     Indication: DESMOPLASTIC SMALL ROUND CELL TUMOUR
     Dosage: PO/NG TWICE DAILY, X 28 DAYS
     Route: 048
     Dates: start: 20131212
  3. TOPOTECAN HYDROCHLORIDE [Suspect]
     Indication: DESMOPLASTIC SMALL ROUND CELL TUMOUR
     Dosage: 0.75MG/M2/DOSE IV DA, DAILY FOR 5 DAYS
     Route: 042
     Dates: start: 20131213
  4. CYCLOPHOSPHAMIDE [Suspect]
     Indication: DESMOPLASTIC SMALL ROUND CELL TUMOUR
     Dosage: DAILY FOR 5 DAYS
     Route: 042
     Dates: start: 20131213
  5. ATIVAN [Concomitant]
     Indication: ANTIEMETIC SUPPORTIVE CARE
     Route: 065
  6. DEXAMETHASONE [Concomitant]
     Indication: ANTIEMETIC SUPPORTIVE CARE
     Route: 065
  7. SCOPOLAMINE [Concomitant]
     Indication: ANTIEMETIC SUPPORTIVE CARE
     Route: 065
  8. ONDANSETRON [Concomitant]
     Indication: ANTIEMETIC SUPPORTIVE CARE
     Route: 065
  9. DRONABINOL [Concomitant]
     Indication: ANTIEMETIC SUPPORTIVE CARE
     Route: 065
  10. PROMETHAZINE [Concomitant]
     Indication: ANTIEMETIC SUPPORTIVE CARE
     Route: 065

REACTIONS (6)
  - Dehydration [Recovered/Resolved]
  - Decreased appetite [Unknown]
  - Hypoxia [Recovering/Resolving]
  - Diarrhoea [Unknown]
  - Nausea [Recovering/Resolving]
  - Faecal incontinence [Unknown]
